FAERS Safety Report 13581745 (Version 3)
Quarter: 2017Q3

REPORT INFORMATION
  Report Type: Report from Study
  Country: CO (occurrence: CO)
  Receive Date: 20170525
  Receipt Date: 20170804
  Transmission Date: 20171127
  Serious: Yes (Hospitalization, Other)
  Sender: FDA-Public Use
  Company Number: CO-AMGEN-COLSL2017077639

PATIENT
  Age: 39 Year
  Sex: Female

DRUGS (2)
  1. ARANESP [Suspect]
     Active Substance: DARBEPOETIN ALFA
     Indication: NEPHROGENIC ANAEMIA
     Dosage: 100 MUG, UNK
     Route: 058
  2. ARANESP [Suspect]
     Active Substance: DARBEPOETIN ALFA
     Indication: ANAEMIA
     Dosage: 80 MUG, Q2WK
     Route: 058
     Dates: start: 20170111

REACTIONS (4)
  - Organ failure [Not Recovered/Not Resolved]
  - Haemoglobin decreased [Unknown]
  - Urinary tract infection [Recovered/Resolved]
  - Renal transplant [Not Recovered/Not Resolved]

NARRATIVE: CASE EVENT DATE: 20170513
